FAERS Safety Report 9717915 (Version 1)
Quarter: 2013Q4

REPORT INFORMATION
  Report Type: Spontaneous
  Country: US (occurrence: None)
  Receive Date: 20131125
  Receipt Date: 20131125
  Transmission Date: 20140711
  Serious: Yes (Death)
  Sender: FDA-Public Use
  Company Number: UTC-040816

PATIENT
  Age: 20 Year
  Sex: Female
  Weight: 54.5 kg

DRUGS (3)
  1. REMODULIN (5 MILLIGRAM/MILLILITERS, INJECTION FOR INFUSION) (TREPROSTINIL SODIUM) [Suspect]
     Indication: COR PULMONALE CHRONIC
     Dosage: 177.84 UG/KG   (0.1235 UG/KG, 1 IN 1 MIN),  SUBCUTANEOUS
     Route: 058
     Dates: start: 20120928
  2. TRACLEER (BOSENTAN) [Concomitant]
  3. REVATIO (SILDENAFIL CITRATE) (UNKNOWN) (SILDENAFIL) [Concomitant]

REACTIONS (1)
  - Death [None]
